FAERS Safety Report 25620482 (Version 1)
Quarter: 2025Q3

REPORT INFORMATION
  Report Type: Spontaneous
  Country: CO (occurrence: CO)
  Receive Date: 20250730
  Receipt Date: 20250730
  Transmission Date: 20251020
  Serious: Yes (Hospitalization)
  Sender: SANDOZ
  Company Number: CO-002147023-NVSC2025CO093437

PATIENT
  Sex: Female
  Weight: 58 kg

DRUGS (2)
  1. FULVESTRANT [Suspect]
     Active Substance: FULVESTRANT
     Indication: Product used for unknown indication
     Dosage: 1 DF, QMO
     Route: 065
     Dates: start: 20250717
  2. KISQALI [Suspect]
     Active Substance: RIBOCICLIB SUCCINATE
     Indication: Breast cancer metastatic
     Dosage: 600 MG, QD
     Route: 048
     Dates: start: 20241003

REACTIONS (8)
  - Metastases to liver [Unknown]
  - Breast cancer metastatic [Unknown]
  - Malignant neoplasm progression [Unknown]
  - General physical health deterioration [Unknown]
  - Gait disturbance [Unknown]
  - Generalised oedema [Unknown]
  - Liver disorder [Unknown]
  - Malaise [Not Recovered/Not Resolved]
